FAERS Safety Report 7469174-2 (Version None)
Quarter: 2011Q2

REPORT INFORMATION
  Report Type: 
  Country: None (occurrence: None)
  Receive Date: 20110510
  Receipt Date: 20110505
  Transmission Date: 20111010
  Serious: Yes (Other)
  Sender: FDA-Public Use
  Company Number: US-BAYER-2011-035784

PATIENT
  Age: 86 Year
  Sex: Female

DRUGS (2)
  1. PREDNISONE [Concomitant]
  2. NEXAVAR [Suspect]
     Indication: HEPATIC NEOPLASM MALIGNANT
     Dosage: 400 MG, BID
     Route: 048
     Dates: start: 20110416, end: 20110422

REACTIONS (4)
  - WEIGHT DECREASED [None]
  - APHAGIA [None]
  - CANDIDIASIS [None]
  - ASTHENIA [None]
